FAERS Safety Report 4830935-7 (Version None)
Quarter: 2005Q4

REPORT INFORMATION
  Report Type: 
  Country: None (occurrence: None)
  Receive Date: 20051114
  Receipt Date: 20051101
  Transmission Date: 20060501
  Serious: Yes (Hospitalization)
  Sender: FDA-Public Use
  Company Number: 2005151052

PATIENT
  Age: 51 Year
  Sex: Female
  Weight: 85 kg

DRUGS (5)
  1. PHENYTOIN SODIUM [Suspect]
     Indication: EPILEPSY
     Dosage: 300MG TO 325MG, ORAL
     Route: 048
     Dates: start: 20010101
  2. MONTELUKAST SODIUM (MONTELUKAST SODIUM) [Suspect]
     Indication: ASTHMA
     Dosage: 10 MG (10 MG, 1 IN 1 D), ORAL
     Route: 048
     Dates: start: 20041208, end: 20050104
  3. VALPROATE SODIUM [Suspect]
     Indication: EPILEPSY
     Dosage: 500MG TO 1200MG (4 IN 1 D), ORAL
     Route: 048
     Dates: start: 20041104
  4. BENDROFLUMETHIAZIDE (BENDROFLUMETHIAZIDE) [Concomitant]
  5. PERINDOPRIL (PERINDOPRIL) [Concomitant]

REACTIONS (3)
  - CONDITION AGGRAVATED [None]
  - DRUG INTERACTION [None]
  - EPILEPSY [None]
